FAERS Safety Report 8307666-4 (Version None)
Quarter: 2012Q2

REPORT INFORMATION
  Report Type: 
  Country: None (occurrence: None)
  Receive Date: 20120424
  Receipt Date: 20120424
  Transmission Date: 20120825
  Serious: No
  Sender: FDA-Public Use
  Company Number: None

PATIENT
  Age: 76 Year
  Sex: Male
  Weight: 71.667 kg

DRUGS (2)
  1. AMOXICILLIN [Suspect]
     Indication: PROPHYLAXIS
     Dosage: 1 PILL
     Route: 002
     Dates: start: 20120416, end: 20120419
  2. AMOXICILLIN [Suspect]
     Indication: TOOTH EXTRACTION
     Dosage: 1 PILL
     Route: 002
     Dates: start: 20120416, end: 20120419

REACTIONS (2)
  - FEELING HOT [None]
  - HEADACHE [None]
